FAERS Safety Report 9251423 (Version 2)
Quarter: 2013Q2

REPORT INFORMATION
  Report Type: Spontaneous
  Country: MA (occurrence: MA)
  Receive Date: 20130424
  Receipt Date: 20130510
  Transmission Date: 20140414
  Serious: Yes (Hospitalization)
  Sender: FDA-Public Use
  Company Number: MA-B.I. PHARMACEUTICALS,INC./RIDGEFIELD-2013-BI-11129GD

PATIENT
  Age: 26 Year
  Sex: Female

DRUGS (2)
  1. MOBIC [Suspect]
     Dosage: 7.5 MG
  2. STAPHYPEN [Suspect]
     Dosage: 1.5 G

REACTIONS (6)
  - Colitis [Recovered/Resolved]
  - Diarrhoea haemorrhagic [Recovered/Resolved]
  - Abdominal pain [Recovered/Resolved]
  - Leukocytosis [Recovered/Resolved]
  - Inflammation [Recovered/Resolved]
  - Large intestinal ulcer [Recovered/Resolved]
